FAERS Safety Report 8540149-5 (Version None)
Quarter: 2012Q2

REPORT INFORMATION
  Report Type: 
  Country: None (occurrence: None)
  Receive Date: 20120416
  Receipt Date: 20080414
  Transmission Date: 20120825
  Serious: Yes (Other)
  Sender: FDA-Public Use
  Company Number: PHEH2008US03784

PATIENT
  Age: 55 Year
  Sex: Male
  Weight: 109.3 kg

DRUGS (3)
  1. NEXIUM [Concomitant]
  2. ASPIRIN [Concomitant]
  3. DIOVAN [Suspect]
     Indication: HYPERTENSION
     Dosage: 80 MG, QD, ORAL
     Route: 048
     Dates: end: 20080311

REACTIONS (2)
  - CONTUSION [None]
  - PLATELET COUNT DECREASED [None]
